FAERS Safety Report 6667595-9 (Version None)
Quarter: 2010Q2

REPORT INFORMATION
  Report Type: 
  Country: None (occurrence: None)
  Receive Date: 20100405
  Receipt Date: 20100325
  Transmission Date: 20101027
  Serious: Yes (Hospitalization)
  Sender: FDA-Public Use
  Company Number: JP-ELI_LILLY_AND_COMPANY-JP201003003577

PATIENT
  Age: 54 Year
  Sex: Male

DRUGS (4)
  1. ZYPREXA [Suspect]
     Indication: FRONTOTEMPORAL DEMENTIA
     Dosage: 20 MG, DAILY (1/D)
     Route: 048
  2. HALOPERIDOL [Concomitant]
     Indication: FRONTOTEMPORAL DEMENTIA
     Dosage: 5 MG, DAILY (1/D)
     Route: 048
  3. LEVOMEPROMAZINE [Concomitant]
     Indication: FRONTOTEMPORAL DEMENTIA
     Dosage: 400 MG, DAILY (1/D)
     Route: 048
  4. ZOTEPINE [Concomitant]
     Indication: FRONTOTEMPORAL DEMENTIA
     Route: 048

REACTIONS (3)
  - HALLUCINATION, VISUAL [None]
  - OFF LABEL USE [None]
  - SEDATION [None]
